FAERS Safety Report 5130987-3 (Version None)
Quarter: 2006Q4

REPORT INFORMATION
  Report Type: 
  Country: None (occurrence: None)
  Receive Date: 20060829
  Receipt Date: 20060801
  Transmission Date: 20070319
  Serious: Yes (Other)
  Sender: FDA-Public Use
  Company Number: PHEH2006US06738

PATIENT
  Age: 64 Year
  Sex: Female
  Weight: 56.2 kg

DRUGS (7)
  1. EXJADE [Suspect]
     Indication: BLOOD IRON INCREASED
     Dosage: 1250 MG, ORAL
     Route: 048
     Dates: start: 20060301, end: 20060327
  2. LISINOPRIL [Concomitant]
  3. ATENOLOL [Concomitant]
  4. CLARITIN [Concomitant]
  5. LASIX [Concomitant]
  6. MICRONASE [Concomitant]
  7. FOSAMAX [Concomitant]

REACTIONS (10)
  - ALANINE AMINOTRANSFERASE INCREASED [None]
  - ASPARTATE AMINOTRANSFERASE INCREASED [None]
  - BLOOD ALKALINE PHOSPHATASE INCREASED [None]
  - BLOOD BILIRUBIN INCREASED [None]
  - BLOOD LACTATE DEHYDROGENASE INCREASED [None]
  - GASTROOESOPHAGEAL REFLUX DISEASE [None]
  - HEPATITIS [None]
  - NAUSEA [None]
  - STOMACH DISCOMFORT [None]
  - TRANSAMINASES INCREASED [None]
